FAERS Safety Report 5907003-6 (Version None)
Quarter: 2008Q4

REPORT INFORMATION
  Report Type: 
  Country: None (occurrence: None)
  Receive Date: 20081002
  Receipt Date: 20081002
  Transmission Date: 20090506
  Serious: Yes (Life-Threatening)
  Sender: FDA-Public Use
  Company Number: None

PATIENT
  Age: 68 Year
  Sex: Female
  Weight: 86.1834 kg

DRUGS (5)
  1. LYRICA [Suspect]
     Indication: NEURALGIA
     Dosage: 75 MG 2X DAY PO
     Route: 048
     Dates: start: 20080923, end: 20081001
  2. HYDROCODONE BITARTRATE [Concomitant]
  3. ULTRAM ER [Concomitant]
  4. CALCIUM SUPPLEMENT [Concomitant]
  5. GLUCOSAMINE SUPPLEMENT [Concomitant]

REACTIONS (2)
  - BALANCE DISORDER [None]
  - DIZZINESS [None]
